FAERS Safety Report 7945357-X (Version None)
Quarter: 2011Q4

REPORT INFORMATION
  Report Type: 
  Country: None (occurrence: None)
  Receive Date: 20111129
  Receipt Date: 20110425
  Transmission Date: 20120403
  Serious: No
  Sender: FDA-Public Use
  Company Number: US-GLAXOSMITHKLINE-A0924411A

PATIENT
  Age: 62 Year
  Sex: Female

DRUGS (2)
  1. WELLBUTRIN SR [Suspect]
     Indication: MENOPAUSAL DEPRESSION
     Dosage: 100MG TWICE PER DAY
     Route: 048
     Dates: start: 20110410, end: 20110423
  2. WELLBUTRIN XL [Suspect]
     Indication: MENOPAUSAL DEPRESSION
     Route: 048
     Dates: start: 20110424, end: 20110425

REACTIONS (5)
  - VISION BLURRED [None]
  - CHEILITIS [None]
  - FATIGUE [None]
  - DRUG ADMINISTRATION ERROR [None]
  - FEELING ABNORMAL [None]
